FAERS Safety Report 18560161 (Version 1)
Quarter: 2020Q4

REPORT INFORMATION
  Report Type: Spontaneous
  Country: US (occurrence: US)
  Receive Date: 20201130
  Receipt Date: 20201130
  Transmission Date: 20210114
  Serious: No
  Sender: FDA-Public Use
  Company Number: None

PATIENT
  Age: 83 Year
  Sex: Female
  Weight: 84.2 kg

DRUGS (1)
  1. BAMLANIVIMAB INJECTION [Suspect]
     Active Substance: BAMLANIVIMAB
     Indication: SARS-COV-2 TEST POSITIVE
     Dosage: ?          OTHER FREQUENCY:ONE TIME;?
     Route: 041
     Dates: start: 20201127, end: 20201127

REACTIONS (6)
  - Vomiting [None]
  - Tachycardia [None]
  - Pyrexia [None]
  - Nausea [None]
  - Atrial fibrillation [None]
  - Hyperhidrosis [None]

NARRATIVE: CASE EVENT DATE: 20201127
